FAERS Safety Report 8982129 (Version 1)
Quarter: 2012Q4

REPORT INFORMATION
  Report Type: 
  Country: US (occurrence: US)
  Receive Date: 20121212
  Receipt Date: 20121212
  Transmission Date: 20130627
  Serious: Yes (Death)
  Sender: FDA-Public Use
  Company Number: US-ASTELLAS-1115191

PATIENT
  Sex: Female

DRUGS (2)
  1. TARCEVA [Suspect]
     Indication: MALIGNANT RESPIRATORY TRACT NEOPLASM
     Route: 048
     Dates: start: 20050315, end: 20050608
  2. TARCEVA [Suspect]
     Indication: LUNG NEOPLASM MALIGNANT

REACTIONS (7)
  - Lung neoplasm malignant [Fatal]
  - Thrombocytopenia [Unknown]
  - Drug ineffective [Unknown]
  - Vomiting [Unknown]
  - Malaise [Unknown]
  - Diarrhoea [Unknown]
  - Metastases to skin [Unknown]
